FAERS Safety Report 7163127-X (Version None)
Quarter: 2010Q4

REPORT INFORMATION
  Report Type: 
  Country: None (occurrence: None)
  Receive Date: 20101215
  Receipt Date: 20100301
  Transmission Date: 20110411
  Serious: Yes (Other)
  Sender: FDA-Public Use
  Company Number: US-PFIZER INC-2010026859

PATIENT
  Sex: Female
  Weight: 53.515 kg

DRUGS (3)
  1. LYRICA [Suspect]
     Indication: CONVULSION
     Dosage: 50 MG, 2X/DAY
  2. LACOSAMIDE [Suspect]
     Indication: CONVULSION
     Dosage: UNK
  3. KEPPRA [Suspect]
     Indication: CONVULSION
     Dosage: UNK

REACTIONS (7)
  - BLOOD CHOLESTEROL INCREASED [None]
  - BODY TEMPERATURE DECREASED [None]
  - DEPRESSION [None]
  - DRY EYE [None]
  - FATIGUE [None]
  - FEELING COLD [None]
  - OEDEMA PERIPHERAL [None]
